FAERS Safety Report 21536917 (Version 1)
Quarter: 2022Q4

REPORT INFORMATION
  Report Type: Spontaneous
  Country: CA (occurrence: None)
  Receive Date: 20221101
  Receipt Date: 20221101
  Transmission Date: 20230112
  Serious: Yes (Other)
  Sender: FDA-Public Use
  Company Number: None

PATIENT
  Age: 51 Year
  Sex: Female
  Weight: 85.5 kg

DRUGS (2)
  1. MIRENA [Suspect]
     Active Substance: LEVONORGESTREL
     Indication: Vaginal haemorrhage
     Dosage: OTHER QUANTITY : 1 IUD;?OTHER FREQUENCY : 5 YEARS;?
     Route: 067
     Dates: start: 20221028
  2. PROGESTERONE [Suspect]
     Active Substance: PROGESTERONE

REACTIONS (2)
  - Lip swelling [None]
  - Lip pain [None]

NARRATIVE: CASE EVENT DATE: 20221101
